FAERS Safety Report 22601757 (Version 1)
Quarter: 2023Q2

REPORT INFORMATION
  Report Type: Spontaneous
  Country: US (occurrence: US)
  Receive Date: 20230614
  Receipt Date: 20230614
  Transmission Date: 20230722
  Serious: No
  Sender: FDA-Public Use
  Company Number: US-BIOMARINAP-US-2023-150888

PATIENT

DRUGS (9)
  1. PALYNZIQ [Suspect]
     Active Substance: PEGVALIASE-PQPZ
     Indication: Phenylketonuria
     Dosage: 40 MILLIGRAM, QD
     Route: 058
  2. CETIRIZINE HCL [Concomitant]
     Active Substance: CETIRIZINE HYDROCHLORIDE
     Indication: Product used for unknown indication
     Dosage: 10 MILLIGRAM
  3. ENALAPRIL MALEATE [Concomitant]
     Active Substance: ENALAPRIL MALEATE
     Indication: Product used for unknown indication
     Dosage: 5 MILLIGRAM
  4. CARVEDILOL [Concomitant]
     Active Substance: CARVEDILOL
     Indication: Product used for unknown indication
     Dosage: 25 MILLIGRAM
  5. EPLERENONE [Concomitant]
     Active Substance: EPLERENONE
     Indication: Product used for unknown indication
     Dosage: 25 MILLIGRAM
  6. EPIPEN [Concomitant]
     Active Substance: EPINEPHRINE
     Indication: Product used for unknown indication
  7. ASPIRIN [Concomitant]
     Active Substance: ASPIRIN
     Indication: Product used for unknown indication
     Dosage: 81 MILLIGRAM
  8. FAMOTIDINE [Concomitant]
     Active Substance: FAMOTIDINE
     Indication: Product used for unknown indication
     Dosage: 20 MILLIGRAM
  9. AMOXICILLIN [Concomitant]
     Active Substance: AMOXICILLIN
     Indication: Product used for unknown indication
     Dosage: 500 MILLIGRAM

REACTIONS (2)
  - Injection site nodule [Recovered/Resolved]
  - Off label use [Unknown]
